FAERS Safety Report 10481961 (Version 1)
Quarter: 2014Q3

REPORT INFORMATION
  Report Type: Spontaneous
  Country: US (occurrence: None)
  Receive Date: 20140908
  Receipt Date: 20140908
  Transmission Date: 20150326
  Serious: Yes (Other)
  Sender: FDA-Public Use
  Company Number: 385258

PATIENT
  Age: 60 Year
  Sex: Male
  Weight: 143.8 kg

DRUGS (10)
  1. LEVEMIR [Concomitant]
     Active Substance: INSULIN DETEMIR
  2. LISINOPRIL (LISINOPRIL) [Concomitant]
     Active Substance: LISINOPRIL
  3. ATORVASTATIN (ATORVASTATIN) [Concomitant]
     Active Substance: ATORVASTATIN
  4. VICTOZA [Suspect]
     Active Substance: LIRAGLUTIDE
     Indication: TYPE 2 DIABETES MELLITUS
     Dates: start: 20110523, end: 20130120
  5. CYMBALTA [Concomitant]
     Active Substance: DULOXETINE HYDROCHLORIDE
  6. MELOXICAM (MELOXICAM) [Concomitant]
     Active Substance: MELOXICAM
  7. METFORMIN [Concomitant]
     Active Substance: METFORMIN HYDROCHLORIDE
  8. POTASSIUM (POTASSIUM) [Concomitant]
     Active Substance: POTASSIUM
  9. XYZAL (LEVOCETIRIZINE DIHYDROCHLORIDE) [Concomitant]
  10. PRIMIDONE (PRIMIDONE) [Concomitant]

REACTIONS (2)
  - Pancreatic insufficiency [None]
  - Pancreatitis chronic [None]

NARRATIVE: CASE EVENT DATE: 20120924
